FAERS Safety Report 5070117-X (Version None)
Quarter: 2006Q3

REPORT INFORMATION
  Report Type: 
  Country: None (occurrence: None)
  Receive Date: 20060731
  Receipt Date: 20060718
  Transmission Date: 20061208
  Serious: Yes (Other)
  Sender: FDA-Public Use
  Company Number: 2006089824

PATIENT
  Age: 79 Year
  Sex: Female

DRUGS (7)
  1. NEURONTIN [Suspect]
     Indication: DRUG USE FOR UNKNOWN INDICATION
     Dosage: 900MG - 1200MG (DAILY),
  2. INHIBACE PLUS                (CILAZAPRIL, HYDROCHLOROTHIAZIDE) [Concomitant]
  3. LEVOTHYROXINE SODIUM [Concomitant]
  4. SIMVASTATIN [Concomitant]
  5. DOXAZOSIN (DOXAZOSIN) [Concomitant]
  6. ASPIRIN [Concomitant]
  7. METFORMIN (METFORMIN) [Concomitant]

REACTIONS (3)
  - BLOOD CREATININE INCREASED [None]
  - GLOMERULAR FILTRATION RATE DECREASED [None]
  - RENAL FUNCTION TEST ABNORMAL [None]
